FAERS Safety Report 22034540 (Version 1)
Quarter: 2023Q1

REPORT INFORMATION
  Report Type: Spontaneous
  Country: CN (occurrence: CN)
  Receive Date: 20230224
  Receipt Date: 20230224
  Transmission Date: 20230417
  Serious: Yes (Hospitalization, Other)
  Sender: FDA-Public Use
  Company Number: CN-SA-SAC20230224000056

PATIENT
  Age: 59 Year
  Sex: Female
  Weight: 58 kg

DRUGS (3)
  1. OXALIPLATIN [Suspect]
     Active Substance: OXALIPLATIN
     Indication: Neoplasm malignant
     Dosage: 150 MG, 1X
     Route: 041
     Dates: start: 20230129, end: 20230129
  2. CAPECITABINE [Concomitant]
     Active Substance: CAPECITABINE
     Indication: Neoplasm malignant
     Dosage: 1.5 G, BID
     Route: 048
     Dates: start: 20230129, end: 20230211
  3. DEXTROSE [Concomitant]
     Active Substance: DEXTROSE
     Indication: Vehicle solution use
     Dosage: 500 ML, QD
     Route: 041
     Dates: start: 20230129, end: 20230129

REACTIONS (4)
  - Coma [Recovered/Resolved]
  - Hyperhidrosis [Recovering/Resolving]
  - Hypoaesthesia [Recovering/Resolving]
  - Vomiting [Recovering/Resolving]

NARRATIVE: CASE EVENT DATE: 20230211
